FAERS Safety Report 14510767 (Version 1)
Quarter: 2018Q1

REPORT INFORMATION
  Report Type: Spontaneous
  Country: US (occurrence: US)
  Receive Date: 20180208
  Receipt Date: 20180208
  Transmission Date: 20180509
  Serious: No
  Sender: FDA-Public Use
  Company Number: None

PATIENT
  Age: 56 Year
  Sex: Male
  Weight: 111.4 kg

DRUGS (1)
  1. LEDIPASVIR/SOFOSBUVIR [Suspect]
     Active Substance: LEDIPASVIR\SOFOSBUVIR
     Dates: start: 20151216, end: 20160309

REACTIONS (6)
  - Rash [None]
  - Staphylococcal infection [None]
  - Pruritus [None]
  - Abscess [None]
  - Haemorrhage [None]
  - Urticaria [None]

NARRATIVE: CASE EVENT DATE: 20160225
